FAERS Safety Report 9969923 (Version 2)
Quarter: 2014Q1

REPORT INFORMATION
  Report Type: Report from Study
  Country: ES (occurrence: ES)
  Receive Date: 20140306
  Receipt Date: 20140331
  Transmission Date: 20141002
  Serious: Yes (Other)
  Sender: FDA-Public Use
  Company Number: ES-JNJFOC-20140216229

PATIENT
  Age: 46 Year
  Sex: Male

DRUGS (2)
  1. DARUNAVIR [Suspect]
     Indication: HIV INFECTION
     Route: 048
  2. DARUNAVIR [Suspect]
     Indication: HEPATITIS C
     Route: 048

REACTIONS (2)
  - Acute myocardial infarction [Unknown]
  - Off label use [Unknown]
